FAERS Safety Report 25934098 (Version 1)
Quarter: 2025Q4

REPORT INFORMATION
  Report Type: Spontaneous
  Country: GB (occurrence: GB)
  Receive Date: 20251017
  Receipt Date: 20251017
  Transmission Date: 20260119
  Serious: Yes (Hospitalization, Other)
  Sender: BAXTER
  Company Number: None

PATIENT
  Age: 38 Year
  Sex: Female

DRUGS (2)
  1. CYCLOPHOSPHAMIDE [Suspect]
     Active Substance: CYCLOPHOSPHAMIDE
     Dosage: 600MG/MY (SOLUTION FOR INJECTION)
     Route: 042
  2. EPIRUBICIN [Suspect]
     Active Substance: EPIRUBICIN
     Dosage: 160 MG (PRE-FILLED SYRINGES)
     Route: 042

REACTIONS (6)
  - Renal pain [Unknown]
  - Flank pain [Recovered/Resolved]
  - Diarrhoea [Unknown]
  - Back pain [Unknown]
  - Abdominal pain [Unknown]
  - Chest pain [Unknown]
